FAERS Safety Report 5487706-0 (Version None)
Quarter: 2007Q4

REPORT INFORMATION
  Report Type: 
  Country: None (occurrence: None)
  Receive Date: 20071017
  Receipt Date: 20071009
  Transmission Date: 20080405
  Serious: Yes (Death)
  Sender: FDA-Public Use
  Company Number: PHBS2007JP16519

PATIENT
  Age: 55 Year
  Sex: Male

DRUGS (2)
  1. PREDONINE [Suspect]
     Indication: NEPHRITIS
     Dosage: 40 MG/DAY
     Route: 048
  2. CICLOSPORIN [Suspect]
     Indication: NEPHRITIS
     Dosage: 150 MG/DAY
     Route: 065

REACTIONS (5)
  - ANAEMIA [None]
  - CYTOMEGALOVIRUS ENTEROCOLITIS [None]
  - GASTROINTESTINAL ULCER HAEMORRHAGE [None]
  - HAEMATOCHEZIA [None]
  - SHOCK HAEMORRHAGIC [None]
